FAERS Safety Report 7004647-8 (Version None)
Quarter: 2010Q3

REPORT INFORMATION
  Report Type: 
  Country: None (occurrence: None)
  Receive Date: 20100921
  Receipt Date: 20100910
  Transmission Date: 20110219
  Serious: No
  Sender: FDA-Public Use
  Company Number: US-US-EMD SERONO, INC.-7017349

PATIENT
  Sex: Male
  Weight: 85 kg

DRUGS (3)
  1. REBIF [Suspect]
     Indication: MULTIPLE SCLEROSIS
     Route: 058
     Dates: start: 20090518
  2. NEXIUM [Concomitant]
     Indication: GASTROOESOPHAGEAL REFLUX DISEASE
     Dates: start: 20080101
  3. IBUPROFEN [Concomitant]
     Indication: PREMEDICATION

REACTIONS (7)
  - ABDOMINAL HERNIA [None]
  - ABNORMAL WEIGHT GAIN [None]
  - ASTHENIA [None]
  - BLOOD PRESSURE ABNORMAL [None]
  - INJECTION SITE ERYTHEMA [None]
  - INJECTION SITE HAEMATOMA [None]
  - LIVER FUNCTION TEST ABNORMAL [None]
